FAERS Safety Report 9085665 (Version 2)
Quarter: 2013Q1

REPORT INFORMATION
  Report Type: Spontaneous
  Country: JP (occurrence: JP)
  Receive Date: 20130130
  Receipt Date: 20130221
  Transmission Date: 20140127
  Serious: Yes (Life-Threatening, Other)
  Sender: FDA-Public Use
  Company Number: PHHY2013JP006122

PATIENT
  Age: 40 Year
  Sex: Male

DRUGS (6)
  1. TEGRETOL [Suspect]
     Indication: BIPOLAR DISORDER
     Dosage: 600 MG, DAILY
     Route: 048
  2. PAROXETINE [Interacting]
     Indication: BIPOLAR DISORDER
     Dosage: 20 MG, DAILY
     Route: 048
  3. AMOXAPINE [Interacting]
     Indication: BIPOLAR DISORDER
     Dosage: 150 MG, DAILY
     Route: 048
  4. FLUVOXAMINE [Interacting]
     Indication: BIPOLAR DISORDER
     Dosage: 50 MG, DAILY
     Route: 048
  5. LITHIUM CARBONATE [Interacting]
     Indication: BIPOLAR DISORDER
     Dosage: 1200 MG, DAILY
     Route: 048
  6. MILNACIPRAN [Interacting]
     Indication: BIPOLAR DISORDER
     Dosage: 150 MG, DAILY
     Route: 048

REACTIONS (14)
  - Encephalopathy [Recovered/Resolved]
  - Myotonia [Unknown]
  - Unresponsive to stimuli [Unknown]
  - Hydronephrosis [Recovered/Resolved]
  - Hydroureter [Recovered/Resolved]
  - Tachycardia [Recovered/Resolved]
  - Drug withdrawal syndrome [Recovered/Resolved]
  - Urinary retention [Unknown]
  - Water intoxication [Unknown]
  - Hypertension [Recovered/Resolved]
  - Hyperglycaemia [Recovered/Resolved]
  - C-reactive protein increased [Recovered/Resolved]
  - White blood cell count increased [Recovered/Resolved]
  - Hyperthermia [Unknown]
